FAERS Safety Report 12357563 (Version 2)
Quarter: 2016Q3

REPORT INFORMATION
  Report Type: Report from Study
  Country: GB (occurrence: GB)
  Receive Date: 20160512
  Receipt Date: 20160708
  Transmission Date: 20161109
  Serious: Yes (Hospitalization, Other)
  Sender: FDA-Public Use
  Company Number: GB-AMGEN-GBRSL2016057761

PATIENT
  Sex: Female

DRUGS (1)
  1. ARANESP [Suspect]
     Active Substance: DARBEPOETIN ALFA
     Indication: PRODUCT USED FOR UNKNOWN INDICATION
     Dosage: 100 MCG, UNK
     Route: 065

REACTIONS (3)
  - Haemodialysis [Not Recovered/Not Resolved]
  - Peritonitis [Unknown]
  - Peritoneal dialysis [Recovered/Resolved]

NARRATIVE: CASE EVENT DATE: 2016
